FAERS Safety Report 24678541 (Version 1)
Quarter: 2024Q4

REPORT INFORMATION
  Report Type: Spontaneous
  Country: BE (occurrence: BE)
  Receive Date: 20241129
  Receipt Date: 20241129
  Transmission Date: 20250114
  Serious: Yes (Disabling)
  Sender: SUNOVION
  Company Number: None

PATIENT

DRUGS (2)
  1. ESTRADIOL\NORETHINDRONE ACETATE\RELUGOLIX [Suspect]
     Active Substance: ESTRADIOL\NORETHINDRONE ACETATE\RELUGOLIX
     Indication: Uterine leiomyoma
     Dosage: MINSTENS GEBRUIK TOT 9 DECEMBER
     Route: 048
     Dates: start: 20241031
  2. FERROUS SULFATE [Concomitant]
     Active Substance: FERROUS SULFATE
     Dosage: UNK
     Route: 065

REACTIONS (3)
  - Dizziness [Unknown]
  - Dizziness [Unknown]
  - Night sweats [Unknown]

NARRATIVE: CASE EVENT DATE: 20241031
